FAERS Safety Report 4277352-9 (Version None)
Quarter: 2004Q1

REPORT INFORMATION
  Report Type: 
  Country: None (occurrence: None)
  Receive Date: 20040121
  Receipt Date: 20040109
  Transmission Date: 20041129
  Serious: Yes (Other)
  Sender: FDA-Public Use
  Company Number: US063612

PATIENT
  Sex: Female

DRUGS (1)
  1. ENBREL [Suspect]
     Dates: start: 20010101

REACTIONS (1)
  - CONVULSION [None]
